FAERS Safety Report 5042877-5 (Version None)
Quarter: 2006Q3

REPORT INFORMATION
  Report Type: 
  Country: None (occurrence: None)
  Receive Date: 20060705
  Receipt Date: 20060630
  Transmission Date: 20061208
  Serious: Yes (Hospitalization)
  Sender: FDA-Public Use
  Company Number: FR-GLAXOSMITHKLINE-B0429623A

PATIENT
  Age: 44 Year
  Sex: Male

DRUGS (1)
  1. ZYBAN [Suspect]
     Route: 048
     Dates: start: 20060524, end: 20060606

REACTIONS (2)
  - DERMATITIS BULLOUS [None]
  - RASH MACULO-PAPULAR [None]
